FAERS Safety Report 5130059-8 (Version None)
Quarter: 2006Q4

REPORT INFORMATION
  Report Type: 
  Country: None (occurrence: None)
  Receive Date: 20061013
  Receipt Date: 20060925
  Transmission Date: 20070319
  Serious: Yes (Hospitalization)
  Sender: FDA-Public Use
  Company Number: FR200609006234

PATIENT
  Age: 80 Year
  Sex: Female

DRUGS (4)
  1. FORTEO [Suspect]
     Indication: OSTEOPOROSIS
     Dosage: 20 UG, DAILY (1/D), SUBCUTANEOUS
     Route: 058
     Dates: start: 20051115
  2. FORTEO PEN (FORTEO PEN) PEN, DISPOSABLE [Concomitant]
  3. FORLAX (MACROGOL) [Concomitant]
  4. OROCAL D (S) (CALCIUM CARBONATE, COLECACIFEROL) [Concomitant]

REACTIONS (3)
  - BRONCHITIS [None]
  - HIATUS HERNIA [None]
  - PRODUCTIVE COUGH [None]
